FAERS Safety Report 19740465 (Version 1)
Quarter: 2021Q3

REPORT INFORMATION
  Report Type: Spontaneous
  Country: FR (occurrence: FR)
  Receive Date: 20210824
  Receipt Date: 20210824
  Transmission Date: 20211014
  Serious: Yes (Hospitalization)
  Sender: FDA-Public Use
  Company Number: FR-ACCORD-235972

PATIENT
  Age: 78 Year
  Sex: Female
  Weight: 67 kg

DRUGS (13)
  1. METFORMIN [Suspect]
     Active Substance: METFORMIN HYDROCHLORIDE
     Indication: TYPE 2 DIABETES MELLITUS
     Route: 048
     Dates: end: 202107
  2. APIXABAN [Concomitant]
     Active Substance: APIXABAN
  3. FUROSEMIDE. [Suspect]
     Active Substance: FUROSEMIDE
     Indication: CARDIAC FAILURE
     Route: 048
     Dates: start: 2010, end: 202107
  4. LINEZOLID. [Suspect]
     Active Substance: LINEZOLID
     Indication: SINUSITIS
     Dosage: 600MG 2 IN THE MORNING 2 AT NOON 2 IN THE EVENING
     Route: 048
     Dates: start: 20210701, end: 202107
  5. CHOLURSO [Concomitant]
     Active Substance: URSODIOL
  6. ALLOPURINOL. [Concomitant]
     Active Substance: ALLOPURINOL
  7. BISOPROLOL [Concomitant]
     Active Substance: BISOPROLOL
  8. ESOMEPRAZOLE/ESOMEPRAZOLE MAGNESIUM/ESOMEPRAZOLE SODIUM [Concomitant]
     Active Substance: ESOMEPRAZOLE
  9. PRAVASTATIN. [Concomitant]
     Active Substance: PRAVASTATIN
  10. TRAMADOL. [Concomitant]
     Active Substance: TRAMADOL
  11. FLECAINIDE [Concomitant]
     Active Substance: FLECAINIDE
  12. SPAGULAX [Concomitant]
     Active Substance: HERBALS\PLANTAGO OVATA SEED
  13. ENTRESTO [Concomitant]
     Active Substance: SACUBITRIL\VALSARTAN
     Dosage: 49 MG / 51 MG FILM?COATED TABLETS

REACTIONS (4)
  - Bicytopenia [Recovering/Resolving]
  - Acute kidney injury [Recovering/Resolving]
  - Lactic acidosis [Recovering/Resolving]
  - Product prescribing error [Unknown]

NARRATIVE: CASE EVENT DATE: 20210701
